FAERS Safety Report 6202973-3 (Version None)
Quarter: 2009Q2

REPORT INFORMATION
  Report Type: 
  Country: None (occurrence: None)
  Receive Date: 20090520
  Receipt Date: 20090512
  Transmission Date: 20091009
  Serious: Yes (Other)
  Sender: FDA-Public Use
  Company Number: ADR1722009

PATIENT
  Age: 61 Year
  Sex: Male

DRUGS (3)
  1. SIMVASTATIN [Suspect]
     Indication: HYPERLIPIDAEMIA
     Dosage: 20 MG DAILY
  2. ACETYLSALICYLIC ACID SRT [Concomitant]
  3. ATACAND [Concomitant]

REACTIONS (1)
  - POLYMYALGIA RHEUMATICA [None]
